FAERS Safety Report 20244496 (Version 1)
Quarter: 2021Q4

REPORT INFORMATION
  Report Type: Spontaneous
  Country: FR (occurrence: FR)
  Receive Date: 20211229
  Receipt Date: 20211229
  Transmission Date: 20220304
  Serious: Yes (Life-Threatening, Hospitalization, Disabling, Other)
  Sender: FDA-Public Use
  Company Number: FR-AFSSAPS-AVLY20212862

PATIENT
  Age: 55 Year
  Sex: Male

DRUGS (2)
  1. TRAMADOL [Suspect]
     Active Substance: TRAMADOL
     Indication: Product used for unknown indication
     Dosage: UNK (DOSE NON PRECISEE)
     Route: 048
  2. CANNABIS SATIVA SUBSP. INDICA TOP [Suspect]
     Active Substance: CANNABIS SATIVA SUBSP. INDICA TOP
     Indication: Product used for unknown indication
     Dosage: UNK (6-7 JOINTS /J)
     Route: 055
     Dates: start: 1985

REACTIONS (4)
  - Coma [Recovered/Resolved]
  - Drug abuse [Recovering/Resolving]
  - Seizure [Recovered/Resolved]
  - Thermal burn [Recovering/Resolving]

NARRATIVE: CASE EVENT DATE: 20210928
